FAERS Safety Report 21358195 (Version 1)
Quarter: 2022Q3

REPORT INFORMATION
  Report Type: Spontaneous
  Country: US (occurrence: None)
  Receive Date: 20220921
  Receipt Date: 20220921
  Transmission Date: 20221027
  Serious: Yes (Other)
  Sender: FDA-Public Use
  Company Number: US-ADIENNEP-2022AD000720

PATIENT
  Age: 25 Year
  Sex: Male

DRUGS (2)
  1. THIOTEPA [Suspect]
     Active Substance: THIOTEPA
     Indication: Autologous haematopoietic stem cell transplant
  2. ETOPOSIDE [Suspect]
     Active Substance: ETOPOSIDE
     Indication: Autologous haematopoietic stem cell transplant

REACTIONS (6)
  - Engraftment syndrome [Unknown]
  - Lung disorder [Unknown]
  - Mucormycosis [Unknown]
  - Granulomatosis with polyangiitis [Unknown]
  - Purtscher retinopathy [Unknown]
  - Pulmonary mucormycosis [Unknown]
